FAERS Safety Report 6143222-4 (Version None)
Quarter: 2009Q2

REPORT INFORMATION
  Report Type: 
  Country: None (occurrence: None)
  Receive Date: 20090403
  Receipt Date: 20090331
  Transmission Date: 20091009
  Serious: Yes (Other)
  Sender: FDA-Public Use
  Company Number: US-BAYER-200913841NA

PATIENT

DRUGS (1)
  1. ULTRAVIST 300 [Suspect]
     Indication: COMPUTERISED TOMOGRAM
     Dosage: WARMER AND POWER INJECTOR USED
     Route: 042
     Dates: start: 20090212, end: 20090212

REACTIONS (2)
  - DYSPNOEA [None]
  - TACHYCARDIA [None]
